FAERS Safety Report 13282432 (Version 1)
Quarter: 2017Q1

REPORT INFORMATION
  Report Type: Spontaneous
  Country: US (occurrence: US)
  Receive Date: 20170301
  Receipt Date: 20170301
  Transmission Date: 20170428
  Serious: Yes (Other)
  Sender: FDA-Public Use
  Company Number: US-ROCHE-1894541

PATIENT
  Age: 38 Year
  Sex: Female

DRUGS (3)
  1. ALECENSA [Suspect]
     Active Substance: ALECTINIB HYDROCHLORIDE
     Indication: NON-SMALL CELL LUNG CANCER
     Route: 065
     Dates: start: 201403, end: 201610
  2. CRIZOTINIB [Suspect]
     Active Substance: CRIZOTINIB
     Route: 065
     Dates: start: 201110
  3. CRIZOTINIB [Suspect]
     Active Substance: CRIZOTINIB
     Indication: NON-SMALL CELL LUNG CANCER
     Dosage: STOPPED FOR 3-4 WEEKS
     Route: 065

REACTIONS (8)
  - Bradycardia [Unknown]
  - Oesophageal rupture [Unknown]
  - Oesophagitis [Unknown]
  - Granuloma [Unknown]
  - Drug ineffective [Unknown]
  - Pleural effusion [Unknown]
  - Radiation fibrosis [Unknown]
  - Fatigue [Unknown]
